FAERS Safety Report 7671766-2 (Version None)
Quarter: 2011Q3

REPORT INFORMATION
  Report Type: 
  Country: None (occurrence: None)
  Receive Date: 20110809
  Receipt Date: 20110728
  Transmission Date: 20111222
  Serious: Yes (Hospitalization)
  Sender: FDA-Public Use
  Company Number: JP-ROCHE-746316

PATIENT
  Sex: Female
  Weight: 53 kg

DRUGS (17)
  1. SEROTONE [Concomitant]
     Dosage: AZASETRON HYDROCHLORIDE: INTRAVENOUS NOT OTHERWISE SPECIFIED
     Route: 042
  2. OXALIPLATIN [Suspect]
     Route: 041
     Dates: start: 20100512, end: 20100512
  3. CAPECITABINE [Suspect]
     Route: 048
     Dates: start: 20101013, end: 20101027
  4. BEVACIZUMAB [Suspect]
     Route: 041
     Dates: start: 20100512, end: 20100512
  5. BEVACIZUMAB [Suspect]
     Route: 041
     Dates: start: 20101105, end: 20101105
  6. OXALIPLATIN [Suspect]
     Route: 041
     Dates: start: 20100616, end: 20100616
  7. DEXAMETHASONE SODIUM PHOSPHATE [Concomitant]
     Route: 042
  8. CAPECITABINE [Suspect]
     Route: 048
     Dates: start: 20100512, end: 20100526
  9. BEVACIZUMAB [Suspect]
     Indication: RECTAL CANCER METASTATIC
     Route: 041
     Dates: start: 20100423, end: 20100423
  10. OXALIPLATIN [Suspect]
     Indication: RECTAL CANCER METASTATIC
     Route: 041
     Dates: start: 20100423, end: 20100423
  11. CAPECITABINE [Suspect]
     Indication: RECTAL CANCER METASTATIC
     Route: 048
     Dates: start: 20100430, end: 20100507
  12. BEVACIZUMAB [Suspect]
     Route: 041
     Dates: start: 20100616, end: 20100616
  13. CAPECITABINE [Suspect]
     Route: 048
     Dates: start: 20100616, end: 20100630
  14. CAPECITABINE [Suspect]
     Route: 048
     Dates: start: 20101105, end: 20101119
  15. BEVACIZUMAB [Suspect]
     Route: 041
     Dates: start: 20101013, end: 20101013
  16. OXALIPLATIN [Suspect]
     Route: 041
     Dates: start: 20101013, end: 20101013
  17. OXALIPLATIN [Suspect]
     Route: 041
     Dates: start: 20101105, end: 20101105

REACTIONS (6)
  - NEUTROPHIL COUNT DECREASED [None]
  - HYPERSENSITIVITY [None]
  - WHITE BLOOD CELL COUNT DECREASED [None]
  - NEUROPATHY PERIPHERAL [None]
  - VOMITING [None]
  - PALMAR-PLANTAR ERYTHRODYSAESTHESIA SYNDROME [None]
